FAERS Safety Report 9344233 (Version 1)
Quarter: 2013Q2

REPORT INFORMATION
  Report Type: Spontaneous
  Country: US (occurrence: None)
  Receive Date: 20130610
  Receipt Date: 20130610
  Transmission Date: 20140414
  Serious: Yes (Other)
  Sender: FDA-Public Use
  Company Number: 001545499A

PATIENT
  Age: 25 Year
  Sex: Female

DRUGS (4)
  1. PROACTIV RENEWING CLEANSER [Suspect]
     Indication: ACNE
     Dosage: DERMAL
     Dates: start: 20130317, end: 20130420
  2. PROACTIV REPAIRING TREATMENT [Suspect]
     Indication: ACNE
     Dosage: DERMAL
     Dates: start: 20130317, end: 20130420
  3. ZYRTEC [Concomitant]
  4. DAILY MULTIVITAMIN [Concomitant]

REACTIONS (1)
  - Urticaria [None]
